FAERS Safety Report 4303509-4 (Version None)
Quarter: 2004Q1

REPORT INFORMATION
  Report Type: 
  Country: None (occurrence: None)
  Receive Date: 20040224
  Receipt Date: 20040224
  Transmission Date: 20041129
  Serious: No
  Sender: FDA-Public Use
  Company Number: None

PATIENT
  Age: 69 Year
  Sex: Male
  Weight: 86.1834 kg

DRUGS (3)
  1. MEFLOQUINE HCL [Suspect]
     Indication: MALARIA PROPHYLAXIS
     Dosage: 1 A WEEK ORAL
     Route: 048
  2. PROSCAR [Concomitant]
  3. FLOMAX [Concomitant]

REACTIONS (9)
  - ABNORMAL DREAMS [None]
  - AFFECT LABILITY [None]
  - ANOREXIA [None]
  - ANXIETY [None]
  - DEPRESSION [None]
  - HALLUCINATION [None]
  - INSOMNIA [None]
  - PANIC ATTACK [None]
  - SLEEP DISORDER [None]
